FAERS Safety Report 7945818-3 (Version None)
Quarter: 2011Q4

REPORT INFORMATION
  Report Type: 
  Country: None (occurrence: None)
  Receive Date: 20111129
  Receipt Date: 20111116
  Transmission Date: 20120403
  Serious: Yes (Hospitalization, Other)
  Sender: FDA-Public Use
  Company Number: CA-ROCHE-1015728

PATIENT
  Sex: Male

DRUGS (4)
  1. PERINDOPRIL ERBUMINE [Concomitant]
  2. METOPROLOL TARTRATE [Concomitant]
  3. XOLAIR [Suspect]
     Indication: ASTHMA
     Route: 058
     Dates: start: 20070509
  4. HYDRA-ZIDE [Concomitant]

REACTIONS (4)
  - ANGER [None]
  - BLOOD PRESSURE INCREASED [None]
  - HEART RATE INCREASED [None]
  - CHEST PAIN [None]
